FAERS Safety Report 6030119-3 (Version None)
Quarter: 2009Q1

REPORT INFORMATION
  Report Type: 
  Country: None (occurrence: None)
  Receive Date: 20090106
  Receipt Date: 20090106
  Transmission Date: 20090719
  Serious: Yes (Hospitalization)
  Sender: FDA-Public Use
  Company Number: None

PATIENT
  Age: 59 Year
  Sex: Male

DRUGS (1)
  1. OXYCODONE [Suspect]
     Indication: PAIN
     Dosage: 20 MG OTHER PO
     Route: 048
     Dates: end: 20081120

REACTIONS (6)
  - AGITATION [None]
  - CONFUSIONAL STATE [None]
  - HYPOPHAGIA [None]
  - INSOMNIA [None]
  - MEMORY IMPAIRMENT [None]
  - MENTAL STATUS CHANGES [None]
